FAERS Safety Report 25815381 (Version 2)
Quarter: 2025Q3

REPORT INFORMATION
  Report Type: Spontaneous
  Country: EG (occurrence: EG)
  Receive Date: 20250918
  Receipt Date: 20250929
  Transmission Date: 20251020
  Serious: Yes (Life-Threatening, Hospitalization)
  Sender: NOVO NORDISK
  Company Number: EG-NOVOPROD-1518596

PATIENT
  Age: 35 Month
  Sex: Female
  Weight: 15 kg

DRUGS (6)
  1. FEXOFENADINE [Concomitant]
     Active Substance: FEXOFENADINE HYDROCHLORIDE
     Indication: Nasopharyngitis
     Dosage: 5 ML, BID
     Route: 048
  2. FEXOFENADINE [Concomitant]
     Active Substance: FEXOFENADINE HYDROCHLORIDE
     Indication: Influenza
  3. NOVORAPID [Suspect]
     Active Substance: INSULIN ASPART
     Indication: Type 1 diabetes mellitus
     Dosage: 3 IU, QD
     Route: 058
  4. TRESIBA [Suspect]
     Active Substance: INSULIN DEGLUDEC
     Indication: Type 1 diabetes mellitus
     Dosage: 4 IU, QD
     Route: 058
  5. TRESIBA [Suspect]
     Active Substance: INSULIN DEGLUDEC
     Dosage: 3 IU, QD
     Route: 058
  6. AUGMENTIN [Concomitant]
     Active Substance: AMOXICILLIN\CLAVULANATE POTASSIUM
     Indication: Product used for unknown indication
     Dosage: 600 MG, BID

REACTIONS (7)
  - Hypoglycaemia unawareness [Not Recovered/Not Resolved]
  - Diabetic coma [Not Recovered/Not Resolved]
  - Gait inability [Not Recovered/Not Resolved]
  - Limb discomfort [Not Recovered/Not Resolved]
  - Nervousness [Not Recovered/Not Resolved]
  - Oropharyngeal pain [Recovered/Resolved with Sequelae]
  - Wrong technique in product usage process [Unknown]
